FAERS Safety Report 4943659-2 (Version None)
Quarter: 2006Q1

REPORT INFORMATION
  Report Type: 
  Country: None (occurrence: None)
  Receive Date: 20060314
  Receipt Date: 20051110
  Transmission Date: 20060701
  Serious: Yes (Hospitalization)
  Sender: FDA-Public Use
  Company Number: US-MERCK-0511USA01894

PATIENT
  Age: 56 Year
  Sex: Male
  Weight: 95 kg

DRUGS (14)
  1. LASIX [Concomitant]
     Indication: FLUID RETENTION
     Route: 065
  2. ZOCOR [Concomitant]
     Indication: BLOOD CHOLESTEROL INCREASED
     Route: 065
  3. NASONEX [Concomitant]
     Indication: HYPERSENSITIVITY
     Route: 065
  4. VIOXX [Suspect]
     Indication: ARTHRITIS
     Route: 048
     Dates: start: 20000229, end: 20020709
  5. VIOXX [Suspect]
     Route: 048
     Dates: start: 20000229, end: 20020709
  6. PROZAC [Concomitant]
     Indication: DEPRESSION
     Route: 048
  7. ZYRTEC [Concomitant]
     Indication: HYPERSENSITIVITY
     Route: 048
  8. INSULIN [Concomitant]
     Indication: DIABETES MELLITUS
     Route: 065
  9. NEURONTIN [Concomitant]
     Indication: ARTHRITIS
     Route: 065
  10. ALBUTEROL SULFATE [Concomitant]
     Indication: ASTHMA
     Route: 065
  11. ALBUTEROL [Concomitant]
     Indication: ASTHMA
     Route: 065
  12. PREVACID [Concomitant]
     Indication: GASTROOESOPHAGEAL REFLUX DISEASE
     Route: 065
  13. GUAIFENESIN [Concomitant]
     Indication: COUGH
     Route: 065
  14. AVANDIA [Concomitant]
     Indication: DIABETES MELLITUS
     Route: 065

REACTIONS (6)
  - CAROTID ARTERY DISEASE [None]
  - CEREBROVASCULAR ACCIDENT [None]
  - CHEST PAIN [None]
  - DEPRESSION [None]
  - DYSPHAGIA [None]
  - THYROID NEOPLASM [None]
